FAERS Safety Report 8529941-0 (Version None)
Quarter: 2012Q3

REPORT INFORMATION
  Report Type: 
  Country: None (occurrence: None)
  Receive Date: 20120723
  Receipt Date: 20120712
  Transmission Date: 20120928
  Serious: Yes (Other)
  Sender: FDA-Public Use
  Company Number: GB-GENZYME-MOZO-1000711

PATIENT
  Sex: Female
  Weight: 70.5 kg

DRUGS (19)
  1. QUININE SULFATE [Concomitant]
     Indication: PRODUCT USED FOR UNKNOWN INDICATION
     Dosage: 300 MG, QD
     Route: 065
     Dates: start: 20120506
  2. COLISTIN [Concomitant]
     Indication: INFECTION PROPHYLAXIS
     Dosage: 1.5 OTHER, TID
     Route: 065
     Dates: start: 20120503
  3. AMLODIPINE [Concomitant]
     Indication: HYPERTENSION
     Dosage: 5 MG, QD
     Route: 065
     Dates: start: 20120502
  4. MEBEVERINE [Concomitant]
     Indication: GASTROINTESTINAL PAIN
     Dosage: 135 MG, TID
     Route: 065
     Dates: start: 20120502
  5. PLERIXAFOR [Suspect]
     Indication: ACUTE MYELOID LEUKAEMIA
     Dosage: 240 MCG/KG, QD
     Route: 058
     Dates: start: 20120514, end: 20120518
  6. CLOFARABINE [Suspect]
     Indication: ACUTE MYELOID LEUKAEMIA
     Dosage: 33 MG, QD
     Route: 042
     Dates: start: 20120514, end: 20120518
  7. DAUNORUBICIN HCL [Concomitant]
     Indication: ACUTE MYELOID LEUKAEMIA
     Dosage: 83 MG, QOD
     Route: 042
     Dates: start: 20120514, end: 20120518
  8. BISOPROLOL FUMARATE [Concomitant]
     Indication: PRODUCT USED FOR UNKNOWN INDICATION
     Dosage: 5 MG, QD
     Dates: start: 20120503
  9. MEBEVERINE [Concomitant]
     Indication: ABDOMINAL DISCOMFORT
  10. AMBISOME [Concomitant]
     Indication: ANTIFUNGAL PROPHYLAXIS
     Dosage: 100 MG, QD
     Route: 065
     Dates: start: 20120521, end: 20120523
  11. LANSOPRAZOLE [Concomitant]
     Indication: PROPHYLAXIS
     Dosage: 30 MG, QD
     Route: 065
     Dates: start: 20120502
  12. COTRIM [Concomitant]
     Indication: PROPHYLAXIS
     Dosage: 960 MG, BID
     Route: 065
     Dates: start: 20120514
  13. ACYCLOVIR [Concomitant]
     Indication: PRODUCT USED FOR UNKNOWN INDICATION
     Dosage: 200 MG, QID
     Route: 065
     Dates: start: 20120503
  14. RAMIPRIL [Concomitant]
     Indication: HYPERTENSION
     Dosage: 10 MG, QD
     Route: 065
     Dates: start: 20120502
  15. CYCLIZINE [Concomitant]
     Indication: NAUSEA
     Dosage: 50 MG, PRN
     Route: 065
     Dates: start: 20120515
  16. SENNA-MINT WAF [Concomitant]
     Indication: LAXATIVE SUPPORTIVE CARE
     Dosage: 2 OTHER, BID
     Route: 065
     Dates: start: 20120505
  17. OMACOR [Concomitant]
     Indication: DYSLIPIDAEMIA
     Dosage: 2000 MG, QD
     Route: 065
     Dates: start: 20120502
  18. EZETIMIBE [Concomitant]
     Indication: DYSLIPIDAEMIA
     Dosage: 10 MG, QD
     Route: 065
     Dates: start: 20120502
  19. ONDANSETRON [Concomitant]
     Indication: NAUSEA
     Dosage: 8 MG, BID
     Route: 065
     Dates: start: 20120515, end: 20120524

REACTIONS (1)
  - HYPOKALAEMIA [None]
